FAERS Safety Report 8220011-8 (Version None)
Quarter: 2012Q1

REPORT INFORMATION
  Report Type: 
  Country: None (occurrence: None)
  Receive Date: 20120320
  Receipt Date: 20120306
  Transmission Date: 20120608
  Serious: Yes (Hospitalization, Other)
  Sender: FDA-Public Use
  Company Number: AU-RANBAXY-2012RR-52511

PATIENT
  Age: 59 Year
  Sex: Female

DRUGS (2)
  1. CODEINE [Suspect]
     Indication: PAIN
     Dosage: UNK
     Route: 065
  2. IBUPROFEN [Suspect]
     Indication: PAIN
     Dosage: UNK
     Route: 065

REACTIONS (1)
  - PANCREATITIS ACUTE [None]
